FAERS Safety Report 5899044-2 (Version None)
Quarter: 2008Q3

REPORT INFORMATION
  Report Type: 
  Country: None (occurrence: None)
  Receive Date: 20080925
  Receipt Date: 20080912
  Transmission Date: 20090109
  Serious: Yes (Hospitalization, Other)
  Sender: FDA-Public Use
  Company Number: US-ELI_LILLY_AND_COMPANY-US200809003090

PATIENT
  Age: 56 Year
  Sex: Female

DRUGS (13)
  1. PROZAC [Suspect]
     Indication: DEPRESSION
     Dosage: 60 MG, UNKNOWN
     Route: 065
  2. PROZAC [Suspect]
     Dosage: 80 MG, UNKNOWN
     Route: 065
  3. FLUOXETINE [Concomitant]
     Dosage: UNK, UNKNOWN
     Route: 065
  4. WELLBUTRIN [Concomitant]
     Dosage: UNK, UNKNOWN
     Route: 065
  5. IRON [Concomitant]
     Dosage: UNK, UNKNOWN
     Route: 065
  6. SINGULAIR [Concomitant]
     Dosage: UNK, UNKNOWN
     Route: 065
  7. ACTOS [Concomitant]
     Dosage: UNK, UNKNOWN
     Route: 065
  8. METFORMIN HCL [Concomitant]
     Dosage: UNK, UNKNOWN
     Route: 065
  9. SIMVASTATIN [Concomitant]
     Dosage: UNK, UNKNOWN
     Route: 065
  10. NASACORT [Concomitant]
     Dosage: UNK, UNKNOWN
     Route: 065
  11. TOPAMAX [Concomitant]
     Indication: MIGRAINE
     Dosage: UNK, UNKNOWN
     Route: 065
  12. MULTI-VITAMIN [Concomitant]
     Dosage: UNK, UNKNOWN
     Route: 065
  13. VITAMIN B COMPLEX CAP [Concomitant]
     Dosage: UNK, UNKNOWN
     Route: 065

REACTIONS (4)
  - DRUG INEFFECTIVE [None]
  - GASTRIC BYPASS [None]
  - HYSTERECTOMY [None]
  - OVERDOSE [None]
